FAERS Safety Report 7605403-X (Version None)
Quarter: 2011Q3

REPORT INFORMATION
  Report Type: 
  Country: None (occurrence: None)
  Receive Date: 20110713
  Receipt Date: 20110628
  Transmission Date: 20111222
  Serious: Yes (Death, Life-Threatening, Hospitalization, Disabling, Other)
  Sender: FDA-Public Use
  Company Number: US-BAYER-201034596NA

PATIENT
  Age: 47 Year
  Sex: Female
  Weight: 53.968 kg

DRUGS (8)
  1. FERROUS SULFATE TAB [Concomitant]
     Dosage: DAILY
     Route: 048
  2. BACLOFEN [Concomitant]
     Dosage: UNK
     Dates: start: 20080513
  3. LEVAQUIN [Concomitant]
     Indication: URINARY TRACT INFECTION
     Dosage: DAILY
     Route: 048
     Dates: start: 20080501, end: 20080601
  4. VITAMIN B COMPLEX CAP [Concomitant]
     Dosage: DAILY
     Route: 048
  5. YAZ [Suspect]
     Indication: MENORRHAGIA
     Dosage: UNK
     Route: 048
     Dates: start: 20080701, end: 20080821
  6. NEURONTIN [Concomitant]
     Dosage: DAILY DOSE 300 MG
     Route: 048
  7. COLACE [Concomitant]
     Dosage: DAILY DOSE 100 MG
     Route: 048
  8. DETROL [Concomitant]
     Dosage: DAILY
     Route: 048

REACTIONS (5)
  - MAJOR DEPRESSION [None]
  - PULMONARY EMBOLISM [None]
  - VAGINAL HAEMORRHAGE [None]
  - DEEP VEIN THROMBOSIS [None]
  - RESPIRATORY ARREST [None]
